FAERS Safety Report 21264977 (Version 1)
Quarter: 2022Q3

REPORT INFORMATION
  Report Type: Spontaneous
  Country: GB (occurrence: GB)
  Receive Date: 20220829
  Receipt Date: 20220829
  Transmission Date: 20221027
  Serious: Yes (Death)
  Sender: FDA-Public Use
  Company Number: GB-MHRA-MED-202208230941445170-TBPSZ

PATIENT
  Age: 77 Year
  Sex: Male
  Weight: 72 kg

DRUGS (2)
  1. SITAGLIPTIN PHOSPHATE [Suspect]
     Active Substance: SITAGLIPTIN PHOSPHATE
     Indication: Diabetes mellitus
     Dosage: 100MG OD; ;
     Dates: start: 20181123
  2. RAMIPRIL [Suspect]
     Active Substance: RAMIPRIL
     Indication: Hypertension
     Dosage: 5 MG OD; ;
     Dates: start: 20181123

REACTIONS (1)
  - Swollen tongue [Fatal]

NARRATIVE: CASE EVENT DATE: 20220729
